FAERS Safety Report 6483920-6 (Version None)
Quarter: 2009Q4

REPORT INFORMATION
  Report Type: 
  Country: None (occurrence: None)
  Receive Date: 20091209
  Receipt Date: 20091204
  Transmission Date: 20100525
  Serious: Yes (Death, Hospitalization)
  Sender: FDA-Public Use
  Company Number: US-MERCK-0912USA00841

PATIENT
  Age: 83 Year
  Sex: Female

DRUGS (3)
  1. JANUVIA [Suspect]
     Indication: TYPE 2 DIABETES MELLITUS
     Route: 048
     Dates: start: 20080101
  2. TUMS [Concomitant]
     Route: 065
  3. PEPCID [Concomitant]
     Route: 048

REACTIONS (4)
  - DYSPEPSIA [None]
  - PAIN [None]
  - PANCREATITIS ACUTE [None]
  - VOMITING [None]
